FAERS Safety Report 15699056 (Version 2)
Quarter: 2018Q4

REPORT INFORMATION
  Report Type: Spontaneous
  Country: US (occurrence: US)
  Receive Date: 20181207
  Receipt Date: 20181212
  Transmission Date: 20190205
  Serious: No
  Sender: FDA-Public Use
  Company Number: US-SHIRE-US201847127

PATIENT
  Age: 50 Year
  Sex: Female
  Weight: 62.59 kg

DRUGS (1)
  1. ADDERALL XR [Suspect]
     Active Substance: AMPHETAMINE ASPARTATE\AMPHETAMINE SULFATE\DEXTROAMPHETAMINE SACCHARATE\DEXTROAMPHETAMINE SULFATE
     Indication: ATTENTION DEFICIT/HYPERACTIVITY DISORDER
     Dosage: 30 MG, 1X/DAY:QD
     Route: 065
     Dates: end: 20181202

REACTIONS (8)
  - Product quality issue [Unknown]
  - Abdominal discomfort [Unknown]
  - Dyspepsia [Unknown]
  - Abdominal pain upper [Recovered/Resolved]
  - Unevaluable event [Unknown]
  - Anxiety [Recovered/Resolved]
  - Discomfort [Recovered/Resolved]
  - Inappropriate schedule of product administration [Recovered/Resolved]

NARRATIVE: CASE EVENT DATE: 20181129
